FAERS Safety Report 10354430 (Version 1)
Quarter: 2014Q3

REPORT INFORMATION
  Report Type: Spontaneous
  Country: FR (occurrence: None)
  Receive Date: 20140729
  Receipt Date: 20140729
  Transmission Date: 20150326
  Serious: Yes (Other)
  Sender: FDA-Public Use
  Company Number: FR-SEPTODONT-201402095

PATIENT
  Age: 28 Year
  Sex: Female

DRUGS (1)
  1. SCANDICAINE [Suspect]
     Active Substance: MEPIVACAINE HYDROCHLORIDE
     Indication: LOCAL ANAESTHESIA
     Dosage: 1 DF TOTAL DENTAL
     Dates: start: 1984

REACTIONS (1)
  - Angioedema [None]

NARRATIVE: CASE EVENT DATE: 1984
